FAERS Safety Report 7086269-6 (Version None)
Quarter: 2010Q4

REPORT INFORMATION
  Report Type: 
  Country: None (occurrence: None)
  Receive Date: 20101028
  Receipt Date: 20101013
  Transmission Date: 20110411
  Serious: Yes (Congenital Anomaly)
  Sender: FDA-Public Use
  Company Number: 1000016937

PATIENT
  Sex: Male
  Weight: 2.83 kg

DRUGS (3)
  1. CITALOPRAM HYDROBROMIDE [Suspect]
     Dosage: 30 MG (30 MG,1 IN 1 D),TRANSPLACENTAL
     Route: 064
     Dates: end: 20100421
  2. SOLIAN (AMISULPRIDE) [Suspect]
     Dosage: 200 MG (200 MG,1 IN 1 D),TRANSPLACENTAL
     Route: 064
     Dates: end: 20100421
  3. LEVOTHYROX (LEVOTHYROXINE SODIUM) [Suspect]
     Dosage: 200 MG (200 MG,1 IN 1 D),TRANSPLACENTAL
     Route: 064
     Dates: end: 20100421

REACTIONS (2)
  - MATERNAL DRUGS AFFECTING FOETUS [None]
  - VENTRICULAR SEPTAL DEFECT ACQUIRED [None]
